FAERS Safety Report 11816426 (Version 2)
Quarter: 2016Q2

REPORT INFORMATION
  Report Type: Spontaneous
  Country: PT (occurrence: PT)
  Receive Date: 20151209
  Receipt Date: 20160502
  Transmission Date: 20160815
  Serious: Yes (Life-Threatening, Other)
  Sender: FDA-Public Use
  Company Number: PT-BRISTOL-MYERS SQUIBB COMPANY-BMS-2015-083063

PATIENT
  Age: 78 Year
  Sex: Male

DRUGS (8)
  1. CLEMASTINE [Concomitant]
     Active Substance: CLEMASTINE
     Indication: ALLERGY PROPHYLAXIS
     Dosage: 2 MG, UNK
     Route: 042
  2. IRINOTECAN [Concomitant]
     Active Substance: IRINOTECAN
     Indication: ADENOCARCINOMA OF COLON
     Dosage: UNK
     Route: 042
     Dates: start: 20150624
  3. DEXAMETHASONE. [Concomitant]
     Active Substance: DEXAMETHASONE
     Indication: ALLERGY PROPHYLAXIS
     Dosage: 20 MG, QD
     Route: 042
     Dates: start: 20160328, end: 20160328
  4. FLUOROURACIL. [Concomitant]
     Active Substance: FLUOROURACIL
     Indication: ADENOCARCINOMA OF COLON
     Dosage: UNK
     Route: 042
     Dates: start: 20150624
  5. ERBITUX [Suspect]
     Active Substance: CETUXIMAB
     Indication: ADENOCARCINOMA OF COLON
     Dosage: 975 MG, UNKNOWN
     Route: 042
     Dates: start: 20150708, end: 20150708
  6. ERBITUX [Suspect]
     Active Substance: CETUXIMAB
     Dosage: 725 MG, QD
     Route: 042
  7. FOLINIC ACID [Concomitant]
     Active Substance: LEUCOVORIN
     Indication: ADENOCARCINOMA OF COLON
     Dosage: UNK
     Route: 042
     Dates: start: 20150624
  8. GRANISETRON [Concomitant]
     Active Substance: GRANISETRON
     Indication: ALLERGY PROPHYLAXIS
     Dosage: 3 MG, QD
     Route: 042
     Dates: start: 20160328, end: 20160328

REACTIONS (10)
  - Dry skin [Recovered/Resolved]
  - Skin exfoliation [Recovered/Resolved]
  - Papule [Recovered/Resolved]
  - Drug prescribing error [Unknown]
  - Flushing [Recovered/Resolved]
  - Myoclonus [Recovered/Resolved]
  - Ocular toxicity [Recovered/Resolved]
  - Skin toxicity [Recovered/Resolved]
  - Loss of consciousness [Recovered/Resolved]
  - Erythema [Recovered/Resolved]

NARRATIVE: CASE EVENT DATE: 20150729
